FAERS Safety Report 5281169-6 (Version None)
Quarter: 2007Q1

REPORT INFORMATION
  Report Type: 
  Country: None (occurrence: None)
  Receive Date: 20070329
  Receipt Date: 20070319
  Transmission Date: 20070707
  Serious: Yes (Life-Threatening)
  Sender: FDA-Public Use
  Company Number: SK-MERCK-0703CZE00002

PATIENT
  Age: 14 Year
  Sex: Female
  Weight: 50 kg

DRUGS (3)
  1. SINGULAIR [Suspect]
     Indication: ASTHMA
     Route: 048
     Dates: start: 20070307, end: 20070307
  2. CETIRIZINE HYDROCHLORIDE [Concomitant]
     Indication: RHINITIS ALLERGIC
     Route: 065
     Dates: start: 20060927
  3. ALLERGENIC EXTRACT [Concomitant]
     Indication: RHINITIS ALLERGIC
     Route: 065
     Dates: start: 20061006

REACTIONS (3)
  - DYSPHAGIA [None]
  - DYSPNOEA [None]
  - SENSATION OF FOREIGN BODY [None]
